FAERS Safety Report 5225688-7 (Version None)
Quarter: 2007Q1

REPORT INFORMATION
  Report Type: 
  Country: None (occurrence: None)
  Receive Date: 20061201
  Receipt Date: 20060809
  Transmission Date: 20070707
  Serious: No
  Sender: FDA-Public Use
  Company Number: US200607003843

PATIENT
  Age: 86 Year
  Sex: Female

DRUGS (4)
  1. FORTEO [Suspect]
     Indication: OSTEOPOROSIS
     Dates: start: 20060101
  2. CYMBALTA [Suspect]
     Dates: start: 20060601
  3. ZYPREXA [Suspect]
     Dates: start: 20060601
  4. FORTEO [Concomitant]

REACTIONS (8)
  - ASTHENIA [None]
  - DECREASED APPETITE [None]
  - DEPRESSED MOOD [None]
  - DRY MOUTH [None]
  - DYSPHONIA [None]
  - MALAISE [None]
  - NERVOUSNESS [None]
  - WEIGHT DECREASED [None]
